FAERS Safety Report 8803963 (Version 1)
Quarter: 2012Q4

REPORT INFORMATION
  Report Type: 
  Country: DK (occurrence: DK)
  Receive Date: 20120924
  Receipt Date: 20120924
  Transmission Date: 20130627
  Serious: Yes (Other)
  Sender: FDA-Public Use
  Company Number: DK-JNJFOC-20120907534

PATIENT
  Sex: Male

DRUGS (2)
  1. VERMOX [Suspect]
     Indication: HELMINTHIC INFECTION
     Route: 048
  2. IMMUNOGLOBULIN [Suspect]
     Indication: BLOOD DISORDER
     Route: 065

REACTIONS (2)
  - Neutrophil count decreased [Unknown]
  - Pharyngeal erythema [Unknown]
